FAERS Safety Report 21086478 (Version 1)
Quarter: 2022Q3

REPORT INFORMATION
  Report Type: Report from Study
  Country: ZA (occurrence: ZA)
  Receive Date: 20220715
  Receipt Date: 20220715
  Transmission Date: 20221027
  Serious: Yes (Death, Hospitalization)
  Sender: FDA-Public Use
  Company Number: ZA-AMGEN-ZAFSL2022116318

PATIENT
  Age: 52 Year
  Sex: Female

DRUGS (2)
  1. ARANESP [Suspect]
     Active Substance: DARBEPOETIN ALFA
     Indication: Nephrogenic anaemia
     Dosage: 40 MICROGRAM, QWK
     Route: 058
     Dates: start: 202202, end: 202206
  2. IRON SUCROSE [Concomitant]
     Active Substance: IRON SUCROSE

REACTIONS (1)
  - Hypertension [Fatal]

NARRATIVE: CASE EVENT DATE: 20220601
